FAERS Safety Report 9902106 (Version 4)
Quarter: 2014Q1

REPORT INFORMATION
  Report Type: Report from Study
  Country: US (occurrence: US)
  Receive Date: 20140217
  Receipt Date: 20140324
  Transmission Date: 20141002
  Serious: Yes (Hospitalization)
  Sender: FDA-Public Use
  Company Number: US-SHIRE-ALL1-2014-00397

PATIENT
  Age: 57 Year
  Sex: Female
  Weight: 70.75 kg

DRUGS (4)
  1. 489 (LISDEXAMFETAMINE DIMESYLATE) [Suspect]
     Indication: EATING DISORDER
     Dosage: 50 MG, 1X/DAY:QD
     Route: 048
     Dates: start: 20130416, end: 20140114
  2. 489 (LISDEXAMFETAMINE DIMESYLATE) [Suspect]
     Dosage: UNK UNK, UNKNOWN
     Route: 048
     Dates: start: 20130409, end: 20130415
  3. LEVOTHYROXINE [Concomitant]
     Indication: HYPOTHYROIDISM
     Dosage: 112 ?G, OTHER (EVERY OTHER DAY)
     Route: 048
     Dates: start: 2008
  4. LEVOTHYROXINE [Concomitant]
     Dosage: 125?G, EVERY OTHER DAY
     Dates: start: 2008

REACTIONS (3)
  - Supraventricular tachycardia [Recovered/Resolved]
  - Acute coronary syndrome [Recovered/Resolved]
  - Accidental overdose [Recovered/Resolved]
